FAERS Safety Report 26116491 (Version 1)
Quarter: 2025Q4

REPORT INFORMATION
  Report Type: Spontaneous
  Country: US (occurrence: None)
  Receive Date: 20251202
  Receipt Date: 20251202
  Transmission Date: 20260117
  Serious: Yes (Hospitalization)
  Sender: FDA-CTU
  Company Number: None

PATIENT
  Age: 76 Year
  Sex: Male

DRUGS (2)
  1. CAPECITABINE [Suspect]
     Active Substance: CAPECITABINE
     Indication: Colon cancer
     Dosage: TAKE 3 TABLETS OF 500 MG BY MOUTH AND TWO TABLETS OF 150 MG FOR A TOTAL DOSE OF 1800  MG TWICE DAILY ON DAYS 1-14 OF A 21 DAY CYCLE TOTAL
     Route: 048
     Dates: start: 20251024
  2. CAPECITABINE [Concomitant]
     Active Substance: CAPECITABINE

REACTIONS (3)
  - Diarrhoea [None]
  - Blood potassium decreased [None]
  - Diarrhoea [None]

NARRATIVE: CASE EVENT DATE: 20250901
